FAERS Safety Report 6370133-1 (Version None)
Quarter: 2009Q3

REPORT INFORMATION
  Report Type: 
  Country: None (occurrence: None)
  Receive Date: 20090923
  Receipt Date: 20071128
  Transmission Date: 20100115
  Serious: No
  Sender: FDA-Public Use
  Company Number: US-ASTRAZENECA-2006UW21259

PATIENT
  Age: 19577 Day
  Sex: Female
  Weight: 107 kg

DRUGS (25)
  1. SEROQUEL [Suspect]
     Indication: SLEEP DISORDER
     Route: 048
     Dates: start: 20050101, end: 20060601
  2. SEROQUEL [Suspect]
     Dosage: 200-600 MG
     Route: 048
     Dates: start: 20050718
  3. BENZONATATE [Concomitant]
     Route: 065
  4. CLINDAMYCIN [Concomitant]
     Route: 065
  5. CYCLOBENZAPRINE [Concomitant]
     Route: 065
  6. CYMBALTA [Concomitant]
     Route: 065
     Dates: start: 20060123
  7. CIPROFLAXACIN [Concomitant]
     Route: 065
  8. DOXYCYCLINE [Concomitant]
     Route: 065
  9. EFFEXOR XR [Concomitant]
     Dosage: 75 TO 300 MG
     Route: 065
  10. ENALAPRIL MAL [Concomitant]
     Route: 065
  11. ENBREL [Concomitant]
     Dosage: 50 MG/ML
     Route: 065
  12. FOLIC ACID [Concomitant]
     Route: 065
  13. GLIMEPIRIDE [Concomitant]
     Route: 065
  14. HYDROCODONE [Concomitant]
     Route: 065
  15. LEVAQUIN [Concomitant]
     Route: 065
  16. LOVASTATIN [Concomitant]
     Route: 065
  17. LUNESTA [Concomitant]
     Route: 065
  18. MECLIZINE [Concomitant]
     Route: 065
  19. METHOTREXATE [Concomitant]
     Route: 065
  20. NYSTATIN [Concomitant]
     Route: 065
  21. PREDNISONE TAB [Concomitant]
     Route: 065
  22. PREVACID [Concomitant]
     Route: 065
  23. ROZEREM [Concomitant]
     Route: 065
  24. ULTRACET [Concomitant]
     Route: 065
  25. ZETIA [Concomitant]
     Route: 065

REACTIONS (4)
  - BIPOLAR I DISORDER [None]
  - DIABETES MELLITUS [None]
  - PERSONALITY DISORDER [None]
  - SLEEP DISORDER [None]
